FAERS Safety Report 9803096 (Version 1)
Quarter: 2014Q1

REPORT INFORMATION
  Report Type: Spontaneous
  Country: US (occurrence: None)
  Receive Date: 20140107
  Receipt Date: 20140107
  Transmission Date: 20141002
  Serious: Yes (Other)
  Sender: FDA-Public Use
  Company Number: None

PATIENT
  Age: 59 Year
  Sex: Male
  Weight: 111.13 kg

DRUGS (1)
  1. LEVOFLOXACIN [Suspect]
     Indication: PNEUMONIA
     Dosage: 750 MG 1 PILL 24 HRS  ONCE DAILY TAKEN BY MOUTH
     Route: 048
     Dates: start: 20140101, end: 20140106

REACTIONS (8)
  - Headache [None]
  - Nausea [None]
  - Diarrhoea [None]
  - Vomiting [None]
  - Decreased appetite [None]
  - Abdominal pain upper [None]
  - Paraesthesia [None]
  - Asthenia [None]
